FAERS Safety Report 5545872-2 (Version None)
Quarter: 2007Q4

REPORT INFORMATION
  Report Type: 
  Country: None (occurrence: None)
  Receive Date: 20071211
  Receipt Date: 20070920
  Transmission Date: 20080405
  Serious: No
  Sender: FDA-Public Use
  Company Number: US-ASTRAZENECA-2007UW22159

PATIENT
  Sex: Female

DRUGS (1)
  1. SYMBICORT [Suspect]
     Indication: ASTHMA
     Dosage: 80/4.5 MCG
     Route: 055
     Dates: start: 20070910

REACTIONS (3)
  - CHEST PAIN [None]
  - PARAESTHESIA [None]
  - THERMAL BURN [None]
